FAERS Safety Report 5442117-9 (Version None)
Quarter: 2007Q3

REPORT INFORMATION
  Report Type: 
  Country: None (occurrence: None)
  Receive Date: 20070904
  Receipt Date: 20070827
  Transmission Date: 20080115
  Serious: Yes (Hospitalization, Other)
  Sender: FDA-Public Use
  Company Number: HQWYE470701JUN07

PATIENT
  Sex: Male
  Weight: 80 kg

DRUGS (7)
  1. SIROLIMUS [Suspect]
     Indication: PROPHYLAXIS AGAINST TRANSPLANT REJECTION
     Route: 048
     Dates: start: 20060126, end: 20070419
  2. ASPIRIN [Concomitant]
     Dosage: NOT SPECIFIED
     Dates: start: 20060627
  3. ACYCLOVIR [Concomitant]
     Dosage: NOT SPECIFIED
     Dates: start: 20070116
  4. DESLORATADINE [Concomitant]
     Dosage: NOT SPECIFIED
     Dates: start: 20060921
  5. ESOMEPRAZOLE MAGNESIUM [Concomitant]
     Dosage: NOT SPECIFIED
     Dates: start: 20061221
  6. VALACYCLOVIR HCL [Concomitant]
     Dosage: NOT SPECIFIED
     Dates: start: 20050902
  7. SALMETEROL [Concomitant]
     Dosage: NOT SPECIFIED
     Dates: start: 20060921

REACTIONS (3)
  - CONVULSION [None]
  - HYPOPHOSPHATAEMIA [None]
  - SYNCOPE [None]
